FAERS Safety Report 5372210-0 (Version None)
Quarter: 2007Q2

REPORT INFORMATION
  Report Type: 
  Country: None (occurrence: None)
  Receive Date: 20070627
  Receipt Date: 20070626
  Transmission Date: 20071010
  Serious: Yes (Hospitalization, Disabling)
  Sender: FDA-Public Use
  Company Number: B0476674A

PATIENT
  Sex: Male

DRUGS (7)
  1. VALTREX [Suspect]
     Indication: HERPES ZOSTER
     Dosage: 500MG PER DAY
     Route: 048
     Dates: start: 20070615, end: 20070617
  2. CELTECT [Concomitant]
     Route: 048
  3. URSO 250 [Concomitant]
     Route: 048
  4. ADALAT [Concomitant]
     Route: 048
  5. OLMETEC [Concomitant]
     Route: 048
  6. THYRADIN S [Concomitant]
     Route: 048
  7. ALFAROL [Concomitant]
     Route: 048

REACTIONS (2)
  - ORAL INTAKE REDUCED [None]
  - SOMNOLENCE [None]
